FAERS Safety Report 8171239-7 (Version None)
Quarter: 2012Q1

REPORT INFORMATION
  Report Type: 
  Country: None (occurrence: None)
  Receive Date: 20120228
  Receipt Date: 20120216
  Transmission Date: 20120608
  Serious: Yes (Hospitalization)
  Sender: FDA-Public Use
  Company Number: IE-MEDIMMUNE-MEDI-0014986

PATIENT
  Sex: Male

DRUGS (3)
  1. CALVAPEN PROPHYLAXIS [Concomitant]
  2. SYNAGIS [Suspect]
     Route: 030
     Dates: start: 20110912, end: 20110912
  3. FOLIC ACID [Concomitant]

REACTIONS (1)
  - HAEMOGLOBIN DECREASED [None]
